FAERS Safety Report 12168274 (Version 1)
Quarter: 2016Q1

REPORT INFORMATION
  Report Type: Spontaneous
  Country: DE (occurrence: DE)
  Receive Date: 20160310
  Receipt Date: 20160310
  Transmission Date: 20160526
  Serious: Yes (Hospitalization)
  Sender: FDA-Public Use
  Company Number: DE-MYLANLABS-2016M1010308

PATIENT

DRUGS (6)
  1. CYTARABINE. [Suspect]
     Active Substance: CYTARABINE
     Indication: ACUTE MYELOID LEUKAEMIA
     Route: 065
  2. FLUDARABINE [Suspect]
     Active Substance: FLUDARABINE PHOSPHATE
     Indication: ACUTE MYELOID LEUKAEMIA
     Route: 065
  3. MITOXANTRONE [Suspect]
     Active Substance: MITOXANTRONE HYDROCHLORIDE
     Indication: ACUTE MYELOID LEUKAEMIA
     Route: 065
  4. RIFAMPICIN [Concomitant]
     Active Substance: RIFAMPIN
     Dosage: 600 MG Q 12H
     Route: 042
  5. IDARUBICIN [Suspect]
     Active Substance: IDARUBICIN
     Indication: ACUTE MYELOID LEUKAEMIA
     Route: 065
  6. DAPTOMYCIN. [Suspect]
     Active Substance: DAPTOMYCIN
     Indication: STAPHYLOCOCCAL INFECTION
     Dosage: 12 MG/KG
     Route: 042

REACTIONS (6)
  - Embolism [Recovering/Resolving]
  - Sepsis [Recovering/Resolving]
  - Bacteraemia [Recovering/Resolving]
  - Eosinophil count increased [Unknown]
  - Staphylococcal infection [Recovering/Resolving]
  - Somnolence [Recovered/Resolved]
